FAERS Safety Report 7602496-0 (Version None)
Quarter: 2011Q3

REPORT INFORMATION
  Report Type: 
  Country: None (occurrence: None)
  Receive Date: 20110712
  Receipt Date: 20110630
  Transmission Date: 20111222
  Serious: Yes (Other)
  Sender: FDA-Public Use
  Company Number: US-SHIRE-ALL1-2011-02076

PATIENT
  Age: 25 Year
  Sex: Male

DRUGS (1)
  1. PENTASA [Suspect]
     Indication: CROHN'S DISEASE
     Dosage: 2 G, 2X/DAY:BID(FOUR 500 MG CAPSULES BID)
     Route: 048
     Dates: start: 20030101

REACTIONS (2)
  - DEMYELINATION [None]
  - OFF LABEL USE [None]
